FAERS Safety Report 7789249-8 (Version None)
Quarter: 2011Q3

REPORT INFORMATION
  Report Type: 
  Country: None (occurrence: None)
  Receive Date: 20110930
  Receipt Date: 20110920
  Transmission Date: 20111222
  Serious: Yes (Other)
  Sender: FDA-Public Use
  Company Number: US-BAYER-2010-003061

PATIENT
  Age: 26 Year
  Sex: Female
  Weight: 54.422 kg

DRUGS (4)
  1. NSAID'S [Concomitant]
  2. IBUPROFEN (ADVIL) [Concomitant]
  3. YAZ [Suspect]
     Indication: PREMENSTRUAL SYNDROME
     Dosage: UNK
     Route: 048
     Dates: start: 20050101, end: 20080101
  4. NAPROXEN (ALEVE) [Concomitant]

REACTIONS (5)
  - CONVULSION [None]
  - PAIN [None]
  - INJURY [None]
  - ANXIETY [None]
  - EMOTIONAL DISTRESS [None]
